FAERS Safety Report 5661639-9 (Version None)
Quarter: 2008Q1

REPORT INFORMATION
  Report Type: 
  Country: None (occurrence: None)
  Receive Date: 20080312
  Receipt Date: 20080304
  Transmission Date: 20080703
  Serious: Yes (Other)
  Sender: FDA-Public Use
  Company Number: JP-BRISTOL-MYERS SQUIBB COMPANY-14110324

PATIENT
  Age: 73 Year
  Sex: Female

DRUGS (6)
  1. GATIFLO TABS [Suspect]
     Indication: NEUROGENIC BLADDER
     Route: 048
     Dates: start: 20080214
  2. GATIFLO TABS [Suspect]
     Indication: CYSTITIS NONINFECTIVE
     Route: 048
     Dates: start: 20080214
  3. UBRETID [Concomitant]
     Route: 048
     Dates: start: 20080214
  4. EBRANTIL [Concomitant]
     Route: 048
     Dates: start: 20080214
  5. DAONIL [Concomitant]
     Route: 048
     Dates: start: 20080107
  6. AMLODIN [Concomitant]
     Route: 048

REACTIONS (1)
  - HYPOGLYCAEMIA [None]
